FAERS Safety Report 20327454 (Version 1)
Quarter: 2022Q1

REPORT INFORMATION
  Report Type: Spontaneous
  Country: US (occurrence: US)
  Receive Date: 20220112
  Receipt Date: 20220112
  Transmission Date: 20220423
  Serious: Yes (Hospitalization, Other)
  Sender: FDA-Public Use
  Company Number: US-NOVARTISPH-NVSC2022US003890

PATIENT
  Age: 71 Year
  Sex: Female

DRUGS (4)
  1. HYDROXYCHLOROQUINE [Suspect]
     Active Substance: HYDROXYCHLOROQUINE
     Indication: Rheumatoid arthritis
     Dosage: 200 MG, QD
     Route: 048
  2. PREDNISONE [Suspect]
     Active Substance: PREDNISONE
     Indication: Rheumatoid arthritis
     Dosage: 20 MG, QD
     Route: 048
  3. LIDOCAINE [Suspect]
     Active Substance: LIDOCAINE
     Indication: Facet joint syndrome
     Dosage: 1.5 ML, UNKNOWN
     Route: 008
  4. OXYCODONE [Concomitant]
     Active Substance: OXYCODONE
     Indication: Product used for unknown indication
     Dosage: 5/325 MG
     Route: 065

REACTIONS (1)
  - Extradural abscess [Recovered/Resolved]
